FAERS Safety Report 5622402-8 (Version None)
Quarter: 2008Q1

REPORT INFORMATION
  Report Type: 
  Country: None (occurrence: None)
  Receive Date: 20080114
  Receipt Date: 20070628
  Transmission Date: 20080703
  Serious: Yes (Hospitalization)
  Sender: FDA-Public Use
  Company Number: A03200704410

PATIENT
  Age: 38 Year
  Sex: Female
  Weight: 68.3 kg

DRUGS (4)
  1. PLAVIX [Suspect]
     Indication: ARTERIAL STENT INSERTION
     Dosage: 150 MG, QD, ORAL
     Route: 048
     Dates: start: 20070615
  2. PLAVIX [Suspect]
     Indication: ARTERIAL STENT INSERTION
     Dosage: 75 MG/DAY ALTERNATING WITH 150 MG/DAY, ORAL
     Route: 048
     Dates: start: 20070223, end: 20070615
  3. PLAVIX [Suspect]
     Indication: ARTERIAL STENT INSERTION
     Dosage: 75 MG, QD, ORAL
     Route: 048
     Dates: start: 20070201, end: 20070223
  4. ACETYLSALICYLIC ACID SRT [Concomitant]

REACTIONS (5)
  - CEREBROVASCULAR ACCIDENT [None]
  - CONTUSION [None]
  - DRUG RESISTANCE [None]
  - FATIGUE [None]
  - OVERDOSE [None]
